FAERS Safety Report 5068362-2 (Version None)
Quarter: 2006Q3

REPORT INFORMATION
  Report Type: 
  Country: None (occurrence: None)
  Receive Date: 20060802
  Receipt Date: 20050817
  Transmission Date: 20061208
  Serious: No
  Sender: FDA-Public Use
  Company Number: US-BRISTOL-MYERS SQUIBB COMPANY-13083068

PATIENT
  Age: 75 Year
  Sex: Male
  Weight: 68 kg

DRUGS (12)
  1. COUMADIN [Suspect]
     Indication: CARDIAC MURMUR
     Route: 048
  2. LANOXIN [Concomitant]
  3. LOTREL [Concomitant]
  4. AVAPRO [Concomitant]
  5. HYTRIN [Concomitant]
  6. THEOPHYLLINE [Concomitant]
  7. ACIPHEX [Concomitant]
  8. LORTAB [Concomitant]
  9. ADVAIR DISKUS 100/50 [Concomitant]
  10. ALBUTEROL SPIROS [Concomitant]
  11. IPRATROPIUM BROMIDE [Concomitant]
     Route: 055
  12. COMBIVENT [Concomitant]

REACTIONS (4)
  - CONTUSION [None]
  - HAEMORRHAGE [None]
  - OEDEMA PERIPHERAL [None]
  - SKIN EXFOLIATION [None]
